FAERS Safety Report 7287576-4 (Version None)
Quarter: 2011Q1

REPORT INFORMATION
  Report Type: 
  Country: None (occurrence: None)
  Receive Date: 20110208
  Receipt Date: 20110208
  Transmission Date: 20110831
  Serious: Yes (Life-Threatening, Disabling)
  Sender: FDA-Public Use
  Company Number: None

PATIENT
  Age: 74 Year
  Sex: Female
  Weight: 87.9978 kg

DRUGS (1)
  1. METHOTREXATE [Suspect]
     Indication: RHEUMATOID ARTHRITIS
     Dates: start: 20100919, end: 20101026

REACTIONS (11)
  - BONE PAIN [None]
  - HEPATIC CIRRHOSIS [None]
  - LEUKOPENIA [None]
  - ALOPECIA [None]
  - VAGINAL HAEMORRHAGE [None]
  - HAEMORRHAGE [None]
  - BONE MARROW DISORDER [None]
  - ILL-DEFINED DISORDER [None]
  - COUGH [None]
  - CONTUSION [None]
  - VAGINAL DISCHARGE [None]
